FAERS Safety Report 5468346-6 (Version None)
Quarter: 2007Q3

REPORT INFORMATION
  Report Type: 
  Country: None (occurrence: None)
  Receive Date: 20070926
  Receipt Date: 20070917
  Transmission Date: 20080115
  Serious: Yes (Other)
  Sender: FDA-Public Use
  Company Number: B0359636A

PATIENT
  Sex: Female

DRUGS (2)
  1. SEROXAT [Suspect]
     Route: 065
     Dates: start: 19950512
  2. THIORIDAZINE HCL [Concomitant]
     Dosage: 25MG AS REQUIRED

REACTIONS (9)
  - AGGRESSION [None]
  - ANXIETY [None]
  - DRUG WITHDRAWAL SYNDROME [None]
  - EMOTIONAL DISORDER [None]
  - EMOTIONAL DISTRESS [None]
  - FEAR [None]
  - IRRITABILITY [None]
  - OVERDOSE [None]
  - SUICIDAL IDEATION [None]
